FAERS Safety Report 9214801 (Version 2)
Quarter: 2014Q2

REPORT INFORMATION
  Report Type: Spontaneous
  Country: US (occurrence: US)
  Receive Date: 20130405
  Receipt Date: 20140513
  Transmission Date: 20141212
  Serious: No
  Sender: FDA-Public Use
  Company Number: US-009507513-1304USA002635

PATIENT
  Age: 48 Year
  Sex: Female
  Weight: 46.26 kg

DRUGS (5)
  1. MIRALAX [Suspect]
     Indication: IRRITABLE BOWEL SYNDROME
     Dosage: 17 G, UNKNOWN
     Route: 048
  2. MIRALAX [Suspect]
     Indication: MEDICAL OBSERVATION
     Dosage: 17 G, UNK
     Route: 048
  3. OMEPRAZOLE [Concomitant]
     Indication: DYSPEPSIA
     Dosage: 40 MG, UNKNOWN
  4. OMEPRAZOLE [Concomitant]
     Indication: GASTROOESOPHAGEAL REFLUX DISEASE
  5. BAYER MIGRAINE FORMULA [Concomitant]
     Indication: MIGRAINE
     Dosage: UNK, UNKNOWN
     Dates: end: 2012

REACTIONS (6)
  - Overdose [Unknown]
  - Inappropriate schedule of drug administration [Unknown]
  - Incorrect drug administration duration [Unknown]
  - Off label use [Unknown]
  - Product quality issue [Unknown]
  - Drug prescribing error [Unknown]
